FAERS Safety Report 22004341 (Version 3)
Quarter: 2023Q2

REPORT INFORMATION
  Report Type: Report from Study
  Country: US (occurrence: None)
  Receive Date: 20230217
  Receipt Date: 20230501
  Transmission Date: 20230722
  Serious: Yes (Hospitalization)
  Sender: FDA-Public Use
  Company Number: US-ROCHE-3285510

PATIENT
  Age: 40 Year
  Sex: Female
  Weight: 60.4 kg

DRUGS (7)
  1. VENETOCLAX [Suspect]
     Active Substance: VENETOCLAX
     Indication: Follicular lymphoma
     Route: 048
     Dates: start: 20230114, end: 20230209
  2. OBINUTUZUMAB [Suspect]
     Active Substance: OBINUTUZUMAB
     Indication: Follicular lymphoma
     Route: 042
     Dates: start: 20230113, end: 20230204
  3. IBRUTINIB [Suspect]
     Active Substance: IBRUTINIB
     Indication: Follicular lymphoma
     Route: 048
     Dates: start: 20230113, end: 20230209
  4. PREDNISONE [Suspect]
     Active Substance: PREDNISONE
     Indication: Follicular lymphoma
     Route: 048
     Dates: start: 20230113, end: 20230209
  5. LENALIDOMIDE [Suspect]
     Active Substance: LENALIDOMIDE
     Indication: Follicular lymphoma
     Route: 048
     Dates: start: 20230113, end: 20230209
  6. NEULASTA [Concomitant]
     Active Substance: PEGFILGRASTIM
     Dates: start: 20230112
  7. PENTAMIDINE [Concomitant]
     Active Substance: PENTAMIDINE
     Dates: start: 20230126

REACTIONS (1)
  - COVID-19 [Unknown]

NARRATIVE: CASE EVENT DATE: 20230209
